FAERS Safety Report 7606903-9 (Version None)
Quarter: 2011Q3

REPORT INFORMATION
  Report Type: 
  Country: None (occurrence: None)
  Receive Date: 20110713
  Receipt Date: 20110712
  Transmission Date: 20111222
  Serious: Yes (Other)
  Sender: FDA-Public Use
  Company Number: FR-ROCHE-788403

PATIENT
  Sex: Female

DRUGS (2)
  1. ROCEPHIN [Suspect]
     Route: 042
     Dates: start: 20110612, end: 20110620
  2. METHOTREXATE [Suspect]
     Dosage: ONE DAY. DRUG NAME REPORTED AS METHOTREXATE BELLON.
     Route: 065
     Dates: start: 20110616, end: 20110616

REACTIONS (2)
  - PALMAR-PLANTAR ERYTHRODYSAESTHESIA SYNDROME [None]
  - CYTOLYTIC HEPATITIS [None]
